FAERS Safety Report 4359741-7 (Version None)
Quarter: 2004Q2

REPORT INFORMATION
  Report Type: 
  Country: None (occurrence: None)
  Receive Date: 20040518
  Receipt Date: 20040507
  Transmission Date: 20050107
  Serious: Yes (Other)
  Sender: FDA-Public Use
  Company Number: US-MERCK-0405USA00573

PATIENT
  Age: 3 Year
  Sex: Female

DRUGS (4)
  1. DISTEAROYLPHOSPHATIDYLGLYCEROL AND VITAMIN E AND AMPHOTERICIN B AND CH [Concomitant]
     Route: 065
  2. AMPHOTERICIN B AND CHOLESTEROL AND DISTEAROYLPHOSPHATIDYLGLYCEROL AND [Concomitant]
     Route: 065
  3. CANCIDAS [Suspect]
     Indication: FUNGAL ENDOCARDITIS
     Route: 042
  4. FLUCYTOSINE [Concomitant]
     Indication: FUNGAL INFECTION
     Route: 065

REACTIONS (10)
  - ABDOMINAL DISCOMFORT [None]
  - ALANINE AMINOTRANSFERASE INCREASED [None]
  - ASPARTATE AMINOTRANSFERASE INCREASED [None]
  - ASTHENIA [None]
  - BLOOD POTASSIUM DECREASED [None]
  - CORNEAL INFECTION [None]
  - CORNEAL OPACITY [None]
  - HAEMATOCRIT DECREASED [None]
  - HYPOKALAEMIA [None]
  - PSEUDOMONAS INFECTION [None]
